FAERS Safety Report 10611325 (Version 2)
Quarter: 2014Q4

REPORT INFORMATION
  Report Type: Report from Study
  Country: GB (occurrence: GB)
  Receive Date: 20141126
  Receipt Date: 20141126
  Transmission Date: 20150529
  Serious: Yes (Disabling, Other)
  Sender: FDA-Public Use
  Company Number: GB-GLAXOSMITHKLINE-B0863945A

PATIENT
  Age: 16 Year

DRUGS (6)
  1. RADIOTHERAPY [Suspect]
     Active Substance: RADIATION THERAPY
     Dates: start: 201101
  2. DABRAFENIB [Suspect]
     Active Substance: DABRAFENIB
     Indication: METASTATIC MALIGNANT MELANOMA
     Route: 048
     Dates: start: 201104
  3. IPILIMUMAB [Suspect]
     Active Substance: IPILIMUMAB
     Dates: start: 201006, end: 201010
  4. KEPPRA [Concomitant]
     Active Substance: LEVETIRACETAM
     Dates: start: 201208
  5. INTERLEUKIN 2 [Concomitant]
     Active Substance: ALDESLEUKIN
     Dates: start: 201208
  6. DACARBAZINE. [Suspect]
     Active Substance: DACARBAZINE
     Dates: start: 201004

REACTIONS (1)
  - Myelitis [Not Recovered/Not Resolved]

NARRATIVE: CASE EVENT DATE: 20121030
